FAERS Safety Report 10230555 (Version 2)
Quarter: 2014Q2

REPORT INFORMATION
  Report Type: Spontaneous
  Country: US (occurrence: US)
  Receive Date: 20140611
  Receipt Date: 20140611
  Transmission Date: 20141212
  Serious: No
  Sender: FDA-Public Use
  Company Number: US-INCYTE CORPORATION-2014IN000943

PATIENT
  Sex: Male
  Weight: 111 kg

DRUGS (29)
  1. JAKAFI [Suspect]
     Indication: MYELOFIBROSIS
     Dosage: 15 MG, BID
     Route: 048
     Dates: start: 20130506, end: 20140326
  2. JAKAFI [Suspect]
     Indication: SPLENOMEGALY
  3. JAKAFI [Suspect]
     Indication: ANAEMIA
  4. ZESTRIL [Concomitant]
     Dosage: 40 MG, QD
     Route: 048
  5. ZESTRIL [Concomitant]
     Dosage: 20 MG, HS
     Route: 048
  6. DILTIAZEM [Concomitant]
     Dosage: 360 MG, UNK
     Route: 048
  7. NIASPAN [Concomitant]
  8. METFORMIN [Concomitant]
     Dosage: 4 DF, QD
     Route: 048
  9. PRILOSEC                           /00661201/ [Concomitant]
  10. LASIX                              /00032601/ [Concomitant]
     Dosage: 40 MG, BID
     Route: 048
  11. ASPIRIN [Concomitant]
     Dosage: 81 MG, QD
     Route: 048
  12. ZANTAC [Concomitant]
     Dosage: 150 MG, QD
     Route: 048
  13. MOTRIN [Concomitant]
  14. CARBONYL IRON                      /00023501/ [Concomitant]
     Dosage: 65 MG, BID
     Route: 048
  15. ALFALFA                            /01255601/ [Concomitant]
     Dosage: 650 MG, QD
     Route: 048
  16. VITAMIN C                          /00008001/ [Concomitant]
     Dosage: 1000 MG, QD
     Route: 048
  17. MULTIVITAMIN                       /00097801/ [Concomitant]
  18. POTASSIUM [Concomitant]
     Dosage: 99 MG, 2X/WK
  19. CRANBERRY                          /01512301/ [Concomitant]
     Dosage: UNK, UNK, DAILY
     Route: 048
  20. LECITHIN [Concomitant]
     Dosage: 400 MG, BID
     Route: 048
  21. VITAMIN D3 [Concomitant]
     Dosage: 2000 UT, QD
     Route: 048
  22. FISH OIL [Concomitant]
  23. VITAMIN B [Concomitant]
  24. OMEPRAZOLE [Concomitant]
     Dosage: 20 MG, QD
     Route: 048
  25. LYCOPENE [Concomitant]
     Dosage: 0.4-600 MG-MCG
     Route: 048
  26. OMEGA-3 FATTY ACIDS [Concomitant]
     Dosage: 1000 MG, QD
     Route: 048
  27. VITAMIN B-12 [Concomitant]
     Dosage: 1000 MCG, QD
     Route: 048
  28. NIACIN [Concomitant]
     Dosage: 2 TIMES DAILY
     Route: 048
  29. CALCIUM [Concomitant]

REACTIONS (10)
  - Night sweats [Recovering/Resolving]
  - Pyrexia [Recovering/Resolving]
  - Photosensitivity reaction [Recovering/Resolving]
  - Application site reaction [Recovering/Resolving]
  - Anaemia [Recovering/Resolving]
  - Thrombocytopenia [Recovering/Resolving]
  - Splenomegaly [Unknown]
  - Blood count abnormal [Recovering/Resolving]
  - Drug ineffective [Recovering/Resolving]
  - White blood cell count decreased [Recovering/Resolving]
